FAERS Safety Report 13832147 (Version 1)
Quarter: 2017Q3

REPORT INFORMATION
  Report Type: Spontaneous
  Country: US (occurrence: US)
  Receive Date: 20170803
  Receipt Date: 20170803
  Transmission Date: 20171127
  Serious: No
  Sender: FDA-Public Use
  Company Number: US-ROCHE-692605

PATIENT
  Age: 65 Year
  Sex: Female
  Weight: 80.7 kg

DRUGS (4)
  1. CENTRUM SILVER [Concomitant]
     Active Substance: MINERALS\VITAMINS
     Route: 065
  2. CRESTOR [Concomitant]
     Active Substance: ROSUVASTATIN CALCIUM
     Route: 065
  3. ATACAND PLUS [Concomitant]
     Active Substance: CANDESARTAN CILEXETIL\HYDROCHLOROTHIAZIDE
     Route: 065
  4. BONIVA [Suspect]
     Active Substance: IBANDRONATE SODIUM
     Indication: DISEASE SUSCEPTIBILITY
     Route: 048

REACTIONS (7)
  - Pyrexia [Recovered/Resolved]
  - Headache [Recovered/Resolved]
  - Arthralgia [Recovered/Resolved]
  - Chills [Recovered/Resolved]
  - Diarrhoea [Recovered/Resolved]
  - Decreased appetite [Recovered/Resolved]
  - Sensory disturbance [Unknown]

NARRATIVE: CASE EVENT DATE: 20100304
